FAERS Safety Report 8157553-X (Version None)
Quarter: 2012Q1

REPORT INFORMATION
  Report Type: 
  Country: None (occurrence: None)
  Receive Date: 20120222
  Receipt Date: 20110708
  Transmission Date: 20120608
  Serious: No
  Sender: FDA-Public Use
  Company Number: US-ASTRAZENECA-2011SE41487

PATIENT

DRUGS (2)
  1. ZESTRIL [Suspect]
     Route: 048
  2. TENORMIN [Suspect]
     Route: 048

REACTIONS (6)
  - DYSPNOEA [None]
  - SWOLLEN TONGUE [None]
  - NAUSEA [None]
  - PHARYNGEAL OEDEMA [None]
  - DRUG HYPERSENSITIVITY [None]
  - SOMNOLENCE [None]
